FAERS Safety Report 18988570 (Version 1)
Quarter: 2021Q1

REPORT INFORMATION
  Report Type: Spontaneous
  Country: CN (occurrence: CN)
  Receive Date: 20210309
  Receipt Date: 20210309
  Transmission Date: 20210420
  Serious: Yes (Other)
  Sender: FDA-Public Use
  Company Number: CN-FRESENIUS KABI-FK202102276

PATIENT
  Age: 34 Year
  Sex: Female

DRUGS (3)
  1. CLOMIFENE [Suspect]
     Active Substance: CLOMIPHENE
     Indication: OVULATION INDUCTION
     Route: 065
  2. MENOTROPHIN [Suspect]
     Active Substance: MENOTROPINS
     Indication: OVULATION INDUCTION
     Route: 030
  3. CHORIONIC GONADOTROPIN [Suspect]
     Active Substance: CHORIOGONADOTROPIN ALFA
     Indication: OVULATION INDUCTION
     Route: 065

REACTIONS (4)
  - Ovarian hyperstimulation syndrome [Recovered/Resolved]
  - Intestinal obstruction [Recovered/Resolved]
  - Peritoneal hernia [Recovered/Resolved]
  - Intestinal strangulation [Recovered/Resolved]
